FAERS Safety Report 12878099 (Version 1)
Quarter: 2016Q4

REPORT INFORMATION
  Report Type: Spontaneous
  Country: US (occurrence: US)
  Receive Date: 20161024
  Receipt Date: 20161024
  Transmission Date: 20170207
  Serious: Yes (Hospitalization)
  Sender: FDA-Public Use
  Company Number: US-ENDO PHARMACEUTICALS INC.-2016-002763

PATIENT
  Age: 58 Year
  Sex: Male
  Weight: 90.8 kg

DRUGS (10)
  1. RAMIPRIL. [Concomitant]
     Active Substance: RAMIPRIL
     Indication: HYPERTENSION
     Route: 048
     Dates: start: 2014
  2. VITAMIN D [Concomitant]
     Active Substance: CHOLECALCIFEROL
     Indication: VITAMIN D DECREASED
     Route: 048
     Dates: start: 201512
  3. CRESTOR [Concomitant]
     Active Substance: ROSUVASTATIN CALCIUM
     Indication: PROPHYLAXIS
     Route: 048
     Dates: start: 201601
  4. NEUPOGEN [Concomitant]
     Active Substance: FILGRASTIM
     Indication: WHITE BLOOD CELL COUNT ABNORMAL
     Route: 065
     Dates: start: 201601
  5. FLECAINIDE [Concomitant]
     Active Substance: FLECAINIDE
     Indication: ATRIAL FIBRILLATION
     Route: 048
     Dates: start: 2012
  6. VITAMIN D [Concomitant]
     Active Substance: CHOLECALCIFEROL
     Indication: PROPHYLAXIS
  7. VANTAS [Suspect]
     Active Substance: HISTRELIN ACETATE
     Indication: PROSTATE CANCER
     Route: 058
     Dates: start: 20160118, end: 20160122
  8. XARELTO [Concomitant]
     Active Substance: RIVAROXABAN
     Indication: ATRIAL FIBRILLATION
     Route: 048
     Dates: start: 201212
  9. CASODEX [Concomitant]
     Active Substance: BICALUTAMIDE
     Indication: ANTIANDROGEN THERAPY
     Route: 048
     Dates: start: 201601
  10. TAXOTERE [Concomitant]
     Active Substance: DOCETAXEL
     Indication: PROSTATE CANCER
     Route: 065
     Dates: start: 201601

REACTIONS (2)
  - Implant site swelling [Recovered/Resolved]
  - Implant site pruritus [Recovered/Resolved]

NARRATIVE: CASE EVENT DATE: 20160122
